FAERS Safety Report 9357789 (Version 1)
Quarter: 2013Q2

REPORT INFORMATION
  Report Type: Spontaneous
  Country: US (occurrence: None)
  Receive Date: 20130619
  Receipt Date: 20130619
  Transmission Date: 20140414
  Serious: No
  Sender: FDA-Public Use
  Company Number: None

PATIENT
  Age: 71 Year
  Sex: Female
  Weight: 52.16 kg

DRUGS (2)
  1. IBUPROFEN [Suspect]
     Indication: PROCEDURAL PAIN
     Route: 048
     Dates: start: 20130604
  2. EXJADE 500 MG NOVARTIS [Suspect]
     Indication: MYELODYSPLASTIC SYNDROME
     Route: 048
     Dates: start: 2012

REACTIONS (2)
  - Abdominal pain upper [None]
  - Drug interaction [None]
